FAERS Safety Report 13657555 (Version 1)
Quarter: 2017Q2

REPORT INFORMATION
  Report Type: Spontaneous
  Country: US (occurrence: US)
  Receive Date: 20170615
  Receipt Date: 20170615
  Transmission Date: 20170830
  Serious: No
  Sender: FDA-Public Use
  Company Number: US-ACTELION-A-US2017-154623

PATIENT

DRUGS (2)
  1. TRACLEER [Suspect]
     Active Substance: BOSENTAN
     Indication: PULMONARY ARTERIAL HYPERTENSION
     Dosage: 15.6 MG, BID
     Route: 048
     Dates: start: 20170221, end: 20170511
  2. TRACLEER [Suspect]
     Active Substance: BOSENTAN
     Dosage: 13 MG, BID
     Route: 048
     Dates: start: 20170511

REACTIONS (1)
  - Alanine aminotransferase [Recovered/Resolved]

NARRATIVE: CASE EVENT DATE: 20170508
